FAERS Safety Report 7583561-3 (Version None)
Quarter: 2011Q2

REPORT INFORMATION
  Report Type: 
  Country: None (occurrence: None)
  Receive Date: 20110630
  Receipt Date: 20110620
  Transmission Date: 20111010
  Serious: No
  Sender: FDA-Public Use
  Company Number: ZA-ROCHE-784551

PATIENT
  Age: 9 Year
  Weight: 40 kg

DRUGS (1)
  1. TAMIFLU [Suspect]
     Route: 065

REACTIONS (2)
  - OVERDOSE [None]
  - NO ADVERSE EVENT [None]
